FAERS Safety Report 5590050-4 (Version None)
Quarter: 2008Q1

REPORT INFORMATION
  Report Type: 
  Country: None (occurrence: None)
  Receive Date: 20080114
  Receipt Date: 20070105
  Transmission Date: 20080703
  Serious: No
  Sender: FDA-Public Use
  Company Number: US-ABBOTT-07P-163-0355607-00

PATIENT
  Sex: Female
  Weight: 11.35 kg

DRUGS (1)
  1. OMNICEF [Suspect]
     Indication: EAR INFECTION
     Route: 048
     Dates: start: 20061222, end: 20070101

REACTIONS (4)
  - AURICULAR SWELLING [None]
  - PYREXIA [None]
  - RASH [None]
  - SWELLING FACE [None]
